FAERS Safety Report 5332772-6 (Version None)
Quarter: 2007Q2

REPORT INFORMATION
  Report Type: 
  Country: None (occurrence: None)
  Receive Date: 20070518
  Receipt Date: 20070502
  Transmission Date: 20071010
  Serious: Yes (Other)
  Sender: FDA-Public Use
  Company Number: DSA_29888_2007

PATIENT
  Age: 54 Year
  Sex: Male

DRUGS (7)
  1. ENALAPRIL MALEATE [Suspect]
     Indication: HYPERTENSION
     Dosage: (10 MG QD; ORAL)
     Route: 048
     Dates: start: 20061222
  2. BLINDED THERAPY [Suspect]
     Indication: OBESITY
     Dosage: (ORAL)
     Route: 048
     Dates: start: 20070118
  3. ACETAMINOPHEN [Concomitant]
  4. TREO [Concomitant]
  5. OMEGA-3 MARINE TRIGLYCERIDES [Concomitant]
  6. TIPAROL [Concomitant]
  7. DIOVAN [Concomitant]

REACTIONS (3)
  - CHOLELITHIASIS [None]
  - NEOPLASM [None]
  - RENAL CYST [None]
